FAERS Safety Report 5009093-4 (Version None)
Quarter: 2006Q2

REPORT INFORMATION
  Report Type: 
  Country: None (occurrence: None)
  Receive Date: 20060517
  Receipt Date: 20060510
  Transmission Date: 20061013
  Serious: Yes (Other)
  Sender: FDA-Public Use
  Company Number: 2006059932

PATIENT
  Age: 19 Year
  Sex: Female
  Weight: 53 kg

DRUGS (1)
  1. DILANTIN [Suspect]
     Indication: EPILEPSY

REACTIONS (6)
  - EOSINOPHILIA [None]
  - HEPATOMEGALY [None]
  - LEUKOCYTOSIS [None]
  - LYMPHADENOPATHY [None]
  - PRURITUS [None]
  - RASH [None]
